FAERS Safety Report 8042655-9 (Version None)
Quarter: 2012Q1

REPORT INFORMATION
  Report Type: 
  Country: None (occurrence: None)
  Receive Date: 20120112
  Receipt Date: 20120109
  Transmission Date: 20120608
  Serious: Yes (Other)
  Sender: FDA-Public Use
  Company Number: CA-MERCK-1201USA00970

PATIENT

DRUGS (2)
  1. CRESTOR [Concomitant]
     Route: 048
  2. ZETIA [Suspect]
     Route: 048

REACTIONS (4)
  - CONDITION AGGRAVATED [None]
  - SINUSITIS [None]
  - UPPER RESPIRATORY TRACT INFECTION [None]
  - ASTHMA [None]
